FAERS Safety Report 13888684 (Version 5)
Quarter: 2018Q2

REPORT INFORMATION
  Report Type: Report from Study
  Country: US (occurrence: US)
  Receive Date: 20170821
  Receipt Date: 20180423
  Transmission Date: 20180711
  Serious: Yes (Death, Hospitalization)
  Sender: FDA-Public Use
  Company Number: US-ACTELION-A-US2017-158298

PATIENT
  Age: 69 Year
  Sex: Female

DRUGS (24)
  1. FERROUS SULFATE. [Concomitant]
     Active Substance: FERROUS SULFATE
  2. LATANOPROST. [Concomitant]
     Active Substance: LATANOPROST
  3. PROBIOTIC [Concomitant]
     Active Substance: PROBIOTICS NOS
  4. OPSUMIT [Suspect]
     Active Substance: MACITENTAN
     Dosage: 10 MG, QD
     Route: 048
     Dates: start: 20170714
  5. SYNTHROID [Concomitant]
     Active Substance: LEVOTHYROXINE SODIUM
     Dosage: 50 MCG, UNK
     Dates: start: 20170421
  6. MUCINEX [Concomitant]
     Active Substance: GUAIFENESIN
  7. FERRIC GLUCONATE TRIHYDRATE [Concomitant]
  8. VITAMIN C [Concomitant]
     Active Substance: ASCORBIC ACID
     Dosage: 500 MG, UNK
  9. FERROUS GLUCONATE [Concomitant]
     Active Substance: FERROUS GLUCONATE
     Dosage: 12.5 MG, UNK
  10. TRAMADOL. [Concomitant]
     Active Substance: TRAMADOL
     Dosage: 50 MG, UNK
     Dates: start: 20170421
  11. ASPIRIN. [Concomitant]
     Active Substance: ASPIRIN
     Dosage: 81 MG, UNK
     Dates: start: 20170421
  12. POTASSIUM CHLORIDE. [Concomitant]
     Active Substance: POTASSIUM CHLORIDE
  13. RANITIDINE. [Concomitant]
     Active Substance: RANITIDINE
     Dosage: 75 MG, UNK
     Dates: start: 20170421
  14. MONTELUKAST [Concomitant]
     Active Substance: MONTELUKAST SODIUM
     Dosage: 10 MG, UNK
     Dates: start: 20170421
  15. PREDNISONE. [Concomitant]
     Active Substance: PREDNISONE
  16. CARAFATE [Concomitant]
     Active Substance: SUCRALFATE
  17. OPSUMIT [Suspect]
     Active Substance: MACITENTAN
     Indication: PULMONARY HYPERTENSION
     Dosage: 10 MG, QD
     Route: 048
     Dates: start: 20170328
  18. DEXILANT [Concomitant]
     Active Substance: DEXLANSOPRAZOLE
     Dosage: 60 MG, UNK
     Dates: start: 20170421
  19. MORPHINE SULFATE. [Concomitant]
     Active Substance: MORPHINE SULFATE
     Dosage: 15 MG, UNK
     Dates: start: 20170421
  20. ADCIRCA [Concomitant]
     Active Substance: TADALAFIL
  21. ALPHAGAN P [Concomitant]
     Active Substance: BRIMONIDINE TARTRATE
  22. CEVIMELINE. [Concomitant]
     Active Substance: CEVIMELINE
     Dosage: 30 MG, UNK
     Dates: start: 20170421
  23. FUROSEMIDE. [Concomitant]
     Active Substance: FUROSEMIDE
  24. FLUTICASONE. [Concomitant]
     Active Substance: FLUTICASONE

REACTIONS (7)
  - Transfusion [Unknown]
  - Gastrointestinal haemorrhage [Unknown]
  - Death [Fatal]
  - Blood pressure increased [Unknown]
  - Anaemia [Unknown]
  - Haematemesis [Unknown]
  - Hypotension [Unknown]

NARRATIVE: CASE EVENT DATE: 20180405
